FAERS Safety Report 8459059-7 (Version None)
Quarter: 2012Q2

REPORT INFORMATION
  Report Type: 
  Country: None (occurrence: None)
  Receive Date: 20120622
  Receipt Date: 20120611
  Transmission Date: 20120825
  Serious: Yes (Death, Hospitalization)
  Sender: FDA-Public Use
  Company Number: TR-TEVA-342664ISR

PATIENT
  Age: 37 Year
  Sex: Female

DRUGS (2)
  1. DOXORUBICIN HCL [Suspect]
     Indication: BREAST CANCER
     Dosage: 40 MG/M2 ON DAY 1, EVERY 28 DAYS, FOR 4 CYCLES
     Route: 065
  2. CYCLOPHOSPHAMIDE [Suspect]
     Indication: BREAST CANCER
     Dosage: 200 MG/M2 ON DAYS 3-6, EVERY 28 DAYS, FOR 4 CYCLES
     Route: 065

REACTIONS (6)
  - FEBRILE NEUTROPENIA [None]
  - BRONCHOPULMONARY ASPERGILLOSIS [None]
  - ACUTE MYELOID LEUKAEMIA [None]
  - SEPSIS [None]
  - RESPIRATORY FAILURE [None]
  - ACUTE MONOCYTIC LEUKAEMIA [None]
